FAERS Safety Report 5322741-4 (Version None)
Quarter: 2007Q2

REPORT INFORMATION
  Report Type: 
  Country: None (occurrence: None)
  Receive Date: 20070511
  Receipt Date: 20070427
  Transmission Date: 20071010
  Serious: Yes (Other)
  Sender: FDA-Public Use
  Company Number: US-SHR-US-2007-011539

PATIENT
  Age: 68 Year
  Sex: Female
  Weight: 100 kg

DRUGS (9)
  1. BETASERON [Suspect]
     Indication: RELAPSING-REMITTING MULTIPLE SCLEROSIS
     Dosage: 8 MIU, EVERY 2D
     Route: 058
     Dates: start: 20011201, end: 20061201
  2. EVISTA [Concomitant]
     Indication: OSTEOPENIA
     Dosage: UNK, 1X/DAY
     Route: 048
  3. OMEPRAZOLE [Concomitant]
     Dosage: UNK, 1X/DAY
     Route: 048
  4. NEURONTIN [Concomitant]
     Dosage: UNK, 6X/DAY
     Route: 048
     Dates: start: 20070101
  5. LISINOPRIL [Concomitant]
     Indication: BLOOD PRESSURE ABNORMAL
     Dosage: UNK, 1X/DAY
     Route: 048
     Dates: start: 20060101
  6. NATALCARE [Concomitant]
     Indication: ANAEMIA
     Dosage: UNK, 1X/DAY
     Route: 048
     Dates: start: 20060101
  7. CALCIUM WITH VITAMIN D [Concomitant]
     Indication: OSTEOPENIA
     Dosage: UNK, 3X/DAY
     Route: 048
     Dates: start: 20040101
  8. FLAXSEED OIL [Concomitant]
     Dosage: UNK, 1X/DAY
     Route: 048
     Dates: start: 20020101
  9. OSTEO BI-FLEX [Concomitant]
     Dosage: UNK, 1X/DAY
     Route: 048
     Dates: start: 20020101

REACTIONS (5)
  - ELECTROENCEPHALOGRAM ABNORMAL [None]
  - HEPATIC CIRRHOSIS [None]
  - HEPATIC ENCEPHALOPATHY [None]
  - OEDEMA DUE TO HEPATIC DISEASE [None]
  - VARICES OESOPHAGEAL [None]
